FAERS Safety Report 14718557 (Version 10)
Quarter: 2018Q2

REPORT INFORMATION
  Report Type: Spontaneous
  Country: NO (occurrence: NO)
  Receive Date: 20180404
  Receipt Date: 20180610
  Transmission Date: 20180711
  Serious: Yes (Life-Threatening, Other)
  Sender: FDA-Public Use
  Company Number: NO-BAXTER-2017BAX013178

PATIENT
  Age: 56 Year
  Sex: Female

DRUGS (21)
  1. KIOVIG [Suspect]
     Active Substance: HUMAN IMMUNOGLOBULIN G
     Indication: OFF LABEL USE
     Route: 065
  2. KIOVIG [Suspect]
     Active Substance: HUMAN IMMUNOGLOBULIN G
     Indication: MYASTHENIA GRAVIS
     Dosage: 120 G (2G/KG) OVER 5 DAYS, DOSAGE FORM: UNSPECIFIED.
     Route: 065
     Dates: start: 20170301, end: 20170306
  3. RAPIFEN (IBUPROFEN) [Suspect]
     Active Substance: IBUPROFEN
     Indication: PRODUCT USED FOR UNKNOWN INDICATION
     Route: 065
     Dates: start: 20170301
  4. KETAMINE [Concomitant]
     Active Substance: KETAMINE
     Indication: PRODUCT USED FOR UNKNOWN INDICATION
     Dosage: DOSAGE FORM: UNSPECIFIED
     Route: 065
  5. ISOFLURAN BAXTER V?SKE TIL INHALASJONSDAMP [Suspect]
     Active Substance: ISOFLURANE
     Dosage: DOSE WAS REDUCED TO 1.1 MAC, FORMULATION: INHALATION VAPOUR.
     Route: 055
     Dates: start: 20170304, end: 20170304
  6. PREDNISOLON [Concomitant]
     Active Substance: PREDNISOLONE
     Dosage: DOSAGE FORM: UNSPECIFIED
     Route: 065
  7. ATROVENT [Suspect]
     Active Substance: IPRATROPIUM BROMIDE
     Indication: PRODUCT USED FOR UNKNOWN INDICATION
     Dosage: DOSAGE FORM: UNSPECIFIED, UNK
     Route: 058
     Dates: start: 20170301
  8. VENTOLINE [Suspect]
     Active Substance: ALBUTEROL
     Indication: PRODUCT USED FOR UNKNOWN INDICATION
     Dosage: DOSAGE FORM: UNSPECIFIED. UNK
     Route: 065
     Dates: start: 20170301
  9. SOMAC [Concomitant]
     Active Substance: PANTOPRAZOLE SODIUM
     Indication: PRODUCT USED FOR UNKNOWN INDICATION
     Dosage: DOSAGE FORM: UNSPECIFIED.
     Route: 065
  10. PREDNISOLON [Concomitant]
     Active Substance: PREDNISOLONE
     Indication: PRODUCT USED FOR UNKNOWN INDICATION
     Dosage: DOSAGE FORM: UNSPECIFIED
     Route: 065
  11. ISOFLURAN BAXTER V?SKE TIL INHALASJONSDAMP [Suspect]
     Active Substance: ISOFLURANE
     Dosage: GRADUALLY TAPPERED OFF, INHALATION VAPOUR
     Route: 055
     Dates: start: 20170304, end: 20170306
  12. SPIFOL 20 MG/ML INJEKSJONS-/INFUSJONSV?SKE, EMULSJON [Suspect]
     Active Substance: PROPOFOL
     Indication: PRODUCT USED FOR UNKNOWN INDICATION
     Dosage: UNK
     Route: 065
     Dates: start: 20170301
  13. PANTOPRAZOLE SODIUM. [Concomitant]
     Active Substance: PANTOPRAZOLE SODIUM
     Route: 065
  14. ISOFLURAN BAXTER V?SKE TIL INHALASJONSDAMP [Suspect]
     Active Substance: ISOFLURANE
     Indication: STATUS ASTHMATICUS
     Dosage: (1-1.4 MAC.)
     Route: 055
     Dates: start: 20170301, end: 20170306
  15. AMLODIPINE [Concomitant]
     Active Substance: AMLODIPINE BESYLATE
     Indication: PRODUCT USED FOR UNKNOWN INDICATION
     Dosage: DOSAGE FORM: UNSPECIFIED, 5MG, UNK
     Route: 065
  16. RAPIFEN (IBUPROFEN) [Suspect]
     Active Substance: IBUPROFEN
     Route: 065
     Dates: start: 20170301
  17. MESTINON [Suspect]
     Active Substance: PYRIDOSTIGMINE BROMIDE
     Indication: PRODUCT USED FOR UNKNOWN INDICATION
     Dosage: 4-5 TABLETS PER DAY, 300MG, 1D
     Route: 065
     Dates: end: 20170301
  18. PROGYNOVA [Concomitant]
     Active Substance: ESTRADIOL VALERATE
     Indication: PRODUCT USED FOR UNKNOWN INDICATION
     Route: 065
  19. SOLU-CORTEF [Suspect]
     Active Substance: HYDROCORTISONE SODIUM SUCCINATE
     Indication: PRODUCT USED FOR UNKNOWN INDICATION
     Dosage: DOSAGE FORM: UNSPECIFIED
     Route: 065
     Dates: start: 20170301
  20. PANTOPRAZOLE SODIUM. [Concomitant]
     Active Substance: PANTOPRAZOLE SODIUM
     Indication: PRODUCT USED FOR UNKNOWN INDICATION
     Dosage: UNK
     Route: 065
  21. ESTRADIOL VALERATE. [Concomitant]
     Active Substance: ESTRADIOL VALERATE
     Indication: PRODUCT USED FOR UNKNOWN INDICATION
     Dosage: DOSAGE FORM: UNSPECIFIED, UNK
     Route: 065

REACTIONS (2)
  - Off label use [Not Recovered/Not Resolved]
  - Hyperkalaemia [Recovering/Resolving]

NARRATIVE: CASE EVENT DATE: 20170302
